FAERS Safety Report 10263576 (Version 3)
Quarter: 2015Q3

REPORT INFORMATION
  Report Type: Spontaneous
  Country: US (occurrence: US)
  Receive Date: 20140626
  Receipt Date: 20150817
  Transmission Date: 20151125
  Serious: No
  Sender: FDA-Public Use
  Company Number: US-GILEAD-2014-0106661

PATIENT
  Age: 43 Year
  Sex: Female

DRUGS (3)
  1. LETAIRIS [Suspect]
     Active Substance: AMBRISENTAN
     Indication: PULMONARY ARTERIAL HYPERTENSION
     Dosage: 10 MG, QD
     Route: 065
     Dates: start: 20121212
  2. ADCIRCA [Concomitant]
     Active Substance: TADALAFIL
     Route: 065
  3. REMODULIN [Concomitant]
     Active Substance: TREPROSTINIL
     Route: 065

REACTIONS (5)
  - Hyperhidrosis [Unknown]
  - Presyncope [Recovered/Resolved]
  - Frustration [Unknown]
  - Dyspnoea [Unknown]
  - Nausea [Unknown]
